FAERS Safety Report 7642219-2 (Version None)
Quarter: 2011Q3

REPORT INFORMATION
  Report Type: 
  Country: None (occurrence: None)
  Receive Date: 20110728
  Receipt Date: 20110714
  Transmission Date: 20111222
  Serious: Yes (Hospitalization, Other)
  Sender: FDA-Public Use
  Company Number: PHHY2011DE05879

PATIENT
  Sex: Male

DRUGS (6)
  1. METFORMIN HYDROCHLORIDE [Suspect]
     Dosage: 1 DF, BID
     Route: 048
     Dates: start: 20101110
  2. AMLODIPINE/VALSARTAN/HYDROCHLOROTHIAZIDE [Suspect]
     Dosage: 1 DF, QD
     Route: 048
     Dates: start: 20100519
  3. ASPIRIN [Concomitant]
     Dosage: 1 DF, QD
     Route: 048
     Dates: start: 20060511
  4. METOPROLOL TARTRATE [Suspect]
     Dosage: 95 MG, UNK
     Route: 048
     Dates: start: 20031007
  5. EZETIMIBE [Concomitant]
     Dosage: 1 DF, QD
     Route: 048
     Dates: start: 20060511
  6. TORSEMIDE [Concomitant]
     Dosage: 10 MG, UNK

REACTIONS (4)
  - ATRIOVENTRICULAR BLOCK COMPLETE [None]
  - PALPITATIONS [None]
  - MYOCARDIAL ISCHAEMIA [None]
  - MEDICATION ERROR [None]
